FAERS Safety Report 4845961-1 (Version None)
Quarter: 2005Q4

REPORT INFORMATION
  Report Type: 
  Country: None (occurrence: None)
  Receive Date: 20051202
  Receipt Date: 20051202
  Transmission Date: 20060501
  Serious: Yes (Hospitalization, Disabling)
  Sender: FDA-Public Use
  Company Number: None

PATIENT
  Age: 74 Year
  Sex: Male
  Weight: 90.7194 kg

DRUGS (1)
  1. GENTAMICIN [Suspect]
     Dosage: 80 MG 2 ML VAIL 2X/DAY IV
     Route: 042
     Dates: start: 20050606, end: 20050712

REACTIONS (1)
  - BALANCE DISORDER [None]
